FAERS Safety Report 17555601 (Version 1)
Quarter: 2020Q1

REPORT INFORMATION
  Report Type: Spontaneous
  Country: DE (occurrence: DE)
  Receive Date: 20200318
  Receipt Date: 20200318
  Transmission Date: 20200409
  Serious: Yes (Congenital Anomaly)
  Sender: FDA-Public Use
  Company Number: NVSC2020DE075648

PATIENT

DRUGS (1)
  1. PARACETAMOL [Suspect]
     Active Substance: ACETAMINOPHEN
     Indication: FOETAL EXPOSURE DURING PREGNANCY
     Dosage: MATERNAL DOSE: 500-2000 MG/DAY TWICE PER WEEK THROUGHOUT PREGNANCY
     Route: 064

REACTIONS (4)
  - Ductus arteriosus stenosis foetal [Recovering/Resolving]
  - Right ventricular hypertrophy [Recovering/Resolving]
  - Congenital pulmonary hypertension [Recovering/Resolving]
  - Foetal exposure during pregnancy [Unknown]
